FAERS Safety Report 25009786 (Version 2)
Quarter: 2025Q2

REPORT INFORMATION
  Report Type: Spontaneous
  Country: JP (occurrence: JP)
  Receive Date: 20250225
  Receipt Date: 20250530
  Transmission Date: 20250716
  Serious: Yes (Death)
  Sender: ROCHE
  Company Number: JP-CHUGAI-2025005547

PATIENT
  Sex: Male
  Weight: 45.5 kg

DRUGS (1)
  1. HEMLIBRA [Suspect]
     Active Substance: EMICIZUMAB-KXWH
     Indication: Haemophilia A with anti factor VIII
     Dosage: 1.5 MILLIGRAM/KILOGRAM, ONCE/WEEK
     Route: 058
     Dates: start: 20180907, end: 20250110

REACTIONS (1)
  - Hepatocellular carcinoma [Fatal]
